FAERS Safety Report 6994123-0 (Version None)
Quarter: 2010Q3

REPORT INFORMATION
  Report Type: 
  Country: None (occurrence: None)
  Receive Date: 20100917
  Receipt Date: 20100409
  Transmission Date: 20110219
  Serious: No
  Sender: FDA-Public Use
  Company Number: US-ASTRAZENECA-2010SE15826

PATIENT
  Sex: Female
  Weight: 136.1 kg

DRUGS (11)
  1. SEROQUEL [Suspect]
     Indication: BIPOLAR DISORDER
     Route: 048
     Dates: start: 20080401, end: 20090101
  2. SEROQUEL [Suspect]
     Indication: SLEEP DISORDER
     Route: 048
     Dates: start: 20080401, end: 20090101
  3. SEROQUEL [Suspect]
     Route: 048
     Dates: start: 20090101, end: 20090501
  4. SEROQUEL [Suspect]
     Route: 048
     Dates: start: 20090101, end: 20090501
  5. SEROQUEL [Suspect]
     Route: 048
     Dates: start: 20100309
  6. SEROQUEL [Suspect]
     Route: 048
     Dates: start: 20100309
  7. TRAZODONE HCL [Concomitant]
  8. LIBRIUM [Concomitant]
  9. LEXAPRO [Concomitant]
  10. RISPERDAL [Concomitant]
  11. REQUIP [Concomitant]

REACTIONS (3)
  - INSOMNIA [None]
  - MEDICATION RESIDUE [None]
  - TACHYPHRENIA [None]
